FAERS Safety Report 10983449 (Version 7)
Quarter: 2016Q3

REPORT INFORMATION
  Report Type: Spontaneous
  Country: US (occurrence: US)
  Receive Date: 20150403
  Receipt Date: 20160909
  Transmission Date: 20161109
  Serious: Yes (Other)
  Sender: FDA-Public Use
  Company Number: US-009507513-1503USA014873

PATIENT
  Sex: Male
  Weight: 101.13 kg

DRUGS (4)
  1. PROZAC [Suspect]
     Active Substance: FLUOXETINE HYDROCHLORIDE
     Dosage: 10 MG, QD
     Route: 048
     Dates: start: 20111103
  2. PROPECIA [Suspect]
     Active Substance: FINASTERIDE
     Indication: ALOPECIA
     Dosage: 1 MG, UNK
     Route: 048
     Dates: start: 2002, end: 2010
  3. PROZAC [Suspect]
     Active Substance: FLUOXETINE HYDROCHLORIDE
     Indication: DEPRESSION
     Dosage: 20 MG, QD
     Route: 048
     Dates: start: 2007, end: 20111102
  4. PROZAC [Suspect]
     Active Substance: FLUOXETINE HYDROCHLORIDE
     Indication: PREMATURE EJACULATION
     Dosage: 10 MG, QD
     Route: 048
     Dates: start: 1996, end: 2007

REACTIONS (11)
  - Penile curvature [Unknown]
  - Penis disorder [Unknown]
  - Erectile dysfunction [Unknown]
  - Anxiety [Not Recovered/Not Resolved]
  - Peyronie^s disease [Not Recovered/Not Resolved]
  - Sexual dysfunction [Not Recovered/Not Resolved]
  - Erectile dysfunction [Not Recovered/Not Resolved]
  - Loss of libido [Not Recovered/Not Resolved]
  - Marital problem [Not Recovered/Not Resolved]
  - Major depression [Not Recovered/Not Resolved]
  - Penis injury [Unknown]

NARRATIVE: CASE EVENT DATE: 2002
